FAERS Safety Report 7290261-6 (Version None)
Quarter: 2011Q1

REPORT INFORMATION
  Report Type: 
  Country: None (occurrence: None)
  Receive Date: 20110214
  Receipt Date: 20110209
  Transmission Date: 20110831
  Serious: Yes (Life-Threatening)
  Sender: FDA-Public Use
  Company Number: JP-ASTRAZENECA-2011SE07756

PATIENT
  Age: 50 Year
  Sex: Male
  Weight: 63 kg

DRUGS (8)
  1. ROCURONIUM BROMIDE [Concomitant]
     Indication: HYPOTONIA
     Route: 065
  2. ROCURONIUM BROMIDE [Concomitant]
     Indication: MAINTENANCE OF ANAESTHESIA
     Route: 065
  3. PROPOFOL [Concomitant]
     Indication: INDUCTION OF ANAESTHESIA
     Route: 042
  4. ROPIVACAINE HYDROCHLORIDE [Suspect]
     Indication: EPIDURAL ANAESTHESIA
     Dosage: 15-21MG/HR
     Route: 008
  5. ROCURONIUM BROMIDE [Concomitant]
     Route: 065
  6. LIDOCAINE [Concomitant]
     Indication: EPIDURAL ANAESTHESIA
     Dosage: TEST DOSE
     Route: 008
  7. ROCURONIUM BROMIDE [Concomitant]
     Route: 065
  8. SEVOFLURANE [Concomitant]
     Indication: MAINTENANCE OF ANAESTHESIA
     Route: 055

REACTIONS (2)
  - CARDIAC ARREST [None]
  - PRINZMETAL ANGINA [None]
